FAERS Safety Report 4818160-7 (Version None)
Quarter: 2005Q3

REPORT INFORMATION
  Report Type: 
  Country: None (occurrence: None)
  Receive Date: 20050929
  Receipt Date: 20050606
  Transmission Date: 20060218
  Serious: No
  Sender: FDA-Public Use
  Company Number: 05P-163-0302396-00

PATIENT
  Age: 58 Year
  Sex: Female
  Weight: 68.0396 kg

DRUGS (11)
  1. HUMIRA [Suspect]
     Indication: RHEUMATOID ARTHRITIS
     Dosage: 40 MG, 1 IN 1 WK, SUBCUTANEOUS; 40 MG, 1 IN 2 WK, SUBCUTANEOUS
     Route: 058
     Dates: start: 20040501, end: 20050513
  2. HUMIRA [Suspect]
     Indication: RHEUMATOID ARTHRITIS
     Dosage: 40 MG, 1 IN 1 WK, SUBCUTANEOUS; 40 MG, 1 IN 2 WK, SUBCUTANEOUS
     Route: 058
     Dates: start: 20050513
  3. LAMOTRIGINE [Concomitant]
  4. LEUCOVORIN CALCIUM [Concomitant]
  5. METHOTREXATE [Concomitant]
  6. PREDNISONE [Concomitant]
  7. HYDROCHLOROTHIAZIDE [Concomitant]
  8. ERGOCALCIFEROL [Concomitant]
  9. CALCIUM CARBONATE [Concomitant]
  10. FOLIC ACID [Concomitant]
  11. RISEDRONATE SODIUM [Concomitant]

REACTIONS (2)
  - INJECTION SITE HAEMORRHAGE [None]
  - INJECTION SITE IRRITATION [None]
